FAERS Safety Report 17452078 (Version 2)
Quarter: 2020Q1

REPORT INFORMATION
  Report Type: Spontaneous
  Country: CZ (occurrence: CZ)
  Receive Date: 20200224
  Receipt Date: 20200227
  Transmission Date: 20200409
  Serious: Yes (Hospitalization)
  Sender: FDA-Public Use
  Company Number: CZ-MYLANLABS-2020M1018545

PATIENT
  Age: 50 Year
  Sex: Male

DRUGS (4)
  1. THEOPHYLLINE [Concomitant]
     Active Substance: THEOPHYLLINE ANHYDROUS
     Indication: PRODUCT USED FOR UNKNOWN INDICATION
     Dosage: UNK
     Route: 065
  2. ESCITALOPRAM [Suspect]
     Active Substance: ESCITALOPRAM OXALATE
     Indication: PRODUCT USED FOR UNKNOWN INDICATION
     Dosage: UNK
     Route: 065
  3. SILYMARIN                          /01131701/ [Concomitant]
     Indication: PRODUCT USED FOR UNKNOWN INDICATION
     Dosage: UNK
     Route: 065
  4. PREDNISOLONE. [Concomitant]
     Active Substance: PREDNISOLONE
     Indication: PRODUCT USED FOR UNKNOWN INDICATION
     Dosage: 40 MILLIGRAM, QD (40 MG, QD)
     Route: 065

REACTIONS (18)
  - Portal hypertension [Not Recovered/Not Resolved]
  - Varices oesophageal [Unknown]
  - Hepatic cirrhosis [Not Recovered/Not Resolved]
  - Hypercalciuria [Unknown]
  - Lymphadenopathy [Unknown]
  - Urinary tract infection [Unknown]
  - Liver disorder [Not Recovered/Not Resolved]
  - Weight decreased [Unknown]
  - Red blood cell count decreased [Unknown]
  - Alveolitis [Unknown]
  - Melaena [Unknown]
  - Interstitial lung disease [Not Recovered/Not Resolved]
  - Fibrosis [Not Recovered/Not Resolved]
  - Cardiac failure [Unknown]
  - Hepatosplenomegaly [Unknown]
  - Lung opacity [Unknown]
  - Sarcoidosis [Not Recovered/Not Resolved]
  - Atrophy [Unknown]

NARRATIVE: CASE EVENT DATE: 201211
